FAERS Safety Report 7328120-2 (Version None)
Quarter: 2011Q1

REPORT INFORMATION
  Report Type: 
  Country: None (occurrence: None)
  Receive Date: 20110303
  Receipt Date: 20110217
  Transmission Date: 20110831
  Serious: Yes (Other)
  Sender: FDA-Public Use
  Company Number: PHFR2011GB01385

PATIENT
  Age: 83 Year
  Weight: 55 kg

DRUGS (4)
  1. ZOLEDRONIC ACID [Suspect]
     Indication: OSTEOPOROSIS
     Dosage: 5 MG, UNK
     Route: 042
     Dates: start: 20110121
  2. CALCICHEW D3 [Concomitant]
     Indication: OSTEOPOROSIS
     Dosage: UNK
     Dates: start: 20101001
  3. IBUPROFEN [Concomitant]
     Indication: PAIN
  4. PARACETAMOL [Concomitant]
     Indication: PAIN

REACTIONS (2)
  - HALLUCINATION, VISUAL [None]
  - ANXIETY [None]
